FAERS Safety Report 8851310 (Version 1)
Quarter: 2012Q4

REPORT INFORMATION
  Report Type: 
  Country: CA (occurrence: CA)
  Receive Date: 20121020
  Receipt Date: 20121020
  Transmission Date: 20130627
  Serious: Yes (Other)
  Sender: FDA-Public Use
  Company Number: PHHY2006CA009972

PATIENT
  Age: 64 Year
  Sex: Female

DRUGS (7)
  1. SANDOSTATIN LAR [Suspect]
     Indication: OVARIAN CANCER
     Dates: start: 20060106
  2. DILAUDID [Concomitant]
  3. FRAGMIN [Concomitant]
  4. K-DUR [Concomitant]
  5. MAGNESIUM [Concomitant]
  6. RIVOTRIL [Concomitant]
  7. STEMETIL [Concomitant]

REACTIONS (2)
  - Blood glucose increased [Unknown]
  - Heart rate increased [Unknown]
